FAERS Safety Report 5024202-9 (Version None)
Quarter: 2006Q2

REPORT INFORMATION
  Report Type: 
  Country: None (occurrence: None)
  Receive Date: 20060607
  Receipt Date: 20060603
  Transmission Date: 20061013
  Serious: Yes (Death)
  Sender: FDA-Public Use
  Company Number: 221173

PATIENT
  Age: 80 Year
  Sex: Male

DRUGS (12)
  1. METALYSE (TENECTEPLASE)PWDR + SOLVENT, INJECTION SOLN, 50MG [Suspect]
     Indication: ACUTE MYOCARDIAL INFARCTION
     Dosage: 50 MG, SINGLE, INTRAVENOUS
     Route: 042
     Dates: start: 20050811, end: 20050811
  2. ANTICOAGULANTS (ANTICOAGULANTS) [Concomitant]
  3. NITRATES NOS (NITRATES NOS) [Concomitant]
  4. CALCIUM ANTAGONISTS (CALCIUM CHANNEL BLOCKER NOS) [Concomitant]
  5. AMEA/AT-I (GENERIC COMPONENT(S)) [Concomitant]
  6. ANTIDIABETIC DRUG NOS (ANTIDIABETIC DRUG NOS) [Concomitant]
  7. HYPOLIPIDEMICS (HYPOLIPIDEMICS) [Concomitant]
  8. ASPIRIN [Concomitant]
  9. HEPARIN [Concomitant]
  10. DIURETICS (DIURETICS) [Concomitant]
  11. DIGITALIS CAP [Concomitant]
  12. ANTIPLATELET (ANTIPLATELET AGENT NOS) [Concomitant]

REACTIONS (4)
  - ANGINA PECTORIS [None]
  - CARDIOGENIC SHOCK [None]
  - DISEASE RECURRENCE [None]
  - VENTRICULAR FIBRILLATION [None]
